FAERS Safety Report 7381410-X (Version None)
Quarter: 2011Q1

REPORT INFORMATION
  Report Type: 
  Country: None (occurrence: None)
  Receive Date: 20110321
  Receipt Date: 20110310
  Transmission Date: 20110831
  Serious: Yes (Hospitalization)
  Sender: FDA-Public Use
  Company Number: GB-ACCORD-008444

PATIENT
  Age: 36 Year
  Sex: Female

DRUGS (7)
  1. CISPLATIN [Suspect]
     Indication: OVARIAN GERM CELL CANCER
     Dosage: 20.00 MG/M2
  2. CYCLOPHOSPHAMIDE [Suspect]
     Indication: OVARIAN GERM CELL CANCER
  3. DACTINOMYCIN [Suspect]
     Indication: OVARIAN GERM CELL CANCER
  4. VINCRISTINE [Suspect]
     Indication: OVARIAN GERM CELL CANCER
  5. BLEOMYCIN SULFATE [Suspect]
     Indication: OVARIAN GERM CELL CANCER
  6. ETOPOSIDE [Suspect]
     Indication: OVARIAN GERM CELL CANCER
     Dosage: 100.00 MG/M2,
  7. METOTREXATE (METHOTREXATE) [Suspect]
     Indication: OVARIAN GERM CELL CANCER

REACTIONS (6)
  - NYSTAGMUS [None]
  - OFF LABEL USE [None]
  - MENINGISM [None]
  - ENCEPHALITIS VIRAL [None]
  - NEUTROPENIC SEPSIS [None]
  - TUBERCULOSIS [None]
